FAERS Safety Report 11786314 (Version 1)
Quarter: 2015Q4

REPORT INFORMATION
  Report Type: Spontaneous
  Country: US (occurrence: US)
  Receive Date: 20151130
  Receipt Date: 20151130
  Transmission Date: 20160305
  Serious: Yes (Other)
  Sender: FDA-Public Use
  Company Number: US-LINDE GAS NORTH AMERICA LLC-US-LHC-2015152

PATIENT
  Age: 48 Year
  Sex: Female

DRUGS (1)
  1. CARBON DIOXIDE (GENERIC) [Suspect]
     Active Substance: CARBON DIOXIDE
     Indication: HYSTERECTOMY

REACTIONS (2)
  - Carbon dioxide increased [Recovered/Resolved]
  - Subcutaneous emphysema [Recovered/Resolved]
